FAERS Safety Report 9018194 (Version 1)
Quarter: 2013Q1

REPORT INFORMATION
  Report Type: Spontaneous
  Country: US (occurrence: None)
  Receive Date: 20130111
  Receipt Date: 20130111
  Transmission Date: 20140127
  Serious: Yes (Life-Threatening, Disabling, Other)
  Sender: FDA-Public Use
  Company Number: None

PATIENT
  Age: 64 Year
  Sex: Female
  Weight: 57.52 kg

DRUGS (2)
  1. LEVEMIR [Suspect]
     Indication: TYPE 1 DIABETES MELLITUS
     Dosage: AM-12 UNITS+ PM-8 UNITS AM + PM IM
     Route: 030
     Dates: start: 20121231, end: 20130110
  2. APIDRA [Concomitant]

REACTIONS (3)
  - Blood glucose increased [None]
  - Drug resistance [None]
  - Drug ineffective [None]
